FAERS Safety Report 20027809 (Version 30)
Quarter: 2023Q1

REPORT INFORMATION
  Report Type: Report from Study
  Country: GB (occurrence: GB)
  Receive Date: 20211103
  Receipt Date: 20230323
  Transmission Date: 20230417
  Serious: Yes (Life-Threatening, Hospitalization, Other)
  Sender: FDA-Public Use
  Company Number: GB-CELLTRION INC.-2021GB014739

PATIENT

DRUGS (309)
  1. RITUXIMAB [Suspect]
     Active Substance: RITUXIMAB
     Indication: Diffuse large B-cell lymphoma stage II
     Dosage: 1Q3W (REGIMEN : 1; PHARMACEUTICAL DOSE FORM: 16)
     Route: 042
     Dates: start: 20210831
  2. RITUXIMAB [Suspect]
     Active Substance: RITUXIMAB
     Indication: Diffuse large B-cell lymphoma
     Dosage: 375 MG/M2, EVERY 3 WEEKS (PHARMACEUTICAL DOSE FORM: 230)
     Route: 042
     Dates: start: 20210831
  3. RITUXIMAB [Suspect]
     Active Substance: RITUXIMAB
     Indication: Diffuse large B-cell lymphoma
     Dosage: 375 MG/M2, 1Q3W (PHARMACEUTICAL DOSE FORM: 16)
     Route: 042
     Dates: start: 20210831
  4. RITUXIMAB [Suspect]
     Active Substance: RITUXIMAB
     Indication: Diffuse large B-cell lymphoma
     Dosage: UNK(PHARMACEUTICAL DOSE FORM: 16)
     Dates: start: 201912, end: 202004
  5. RITUXIMAB [Suspect]
     Active Substance: RITUXIMAB
     Dosage: UNK
     Dates: start: 202008, end: 202009
  6. RITUXIMAB [Suspect]
     Active Substance: RITUXIMAB
     Dosage: 9 MG/M2, Q3W (375 MG/M2, EVERY 3 WEEKS) (PHARMACEUTICAL DOSE FORM: 16)
     Route: 042
     Dates: start: 20210831
  7. RITUXIMAB [Suspect]
     Active Substance: RITUXIMAB
     Dosage: UNK(PHARMACEUTICAL DOSE FORM: 16)
  8. RITUXIMAB [Suspect]
     Active Substance: RITUXIMAB
     Dosage: UNK, (REGIMEN : 1; PHARMACEUTICAL DOSE FORM: 16)
  9. RITUXIMAB [Suspect]
     Active Substance: RITUXIMAB
     Dosage: DATE OF LAST DOSE PRIOR TO EVENT: 21/JUL/2021 AND 11/AUG/2021
     Route: 042
  10. RITUXIMAB [Suspect]
     Active Substance: RITUXIMAB
     Dosage: DATE OF LAST DOSE PRIOR TO EVENT: 21/JUL/2021 AND 11/AUG/2021
     Route: 042
  11. RITUXIMAB [Suspect]
     Active Substance: RITUXIMAB
     Dosage: 375 MILLIGRAM/SQ. METER/ EVERY 3 WEEK
     Route: 042
     Dates: start: 20210831
  12. RITUXIMAB [Suspect]
     Active Substance: RITUXIMAB
     Dosage: 375 MILLIGRAM/SQ. METER/ EVERY 3 WEEK
     Route: 042
     Dates: start: 20210831
  13. RITUXIMAB [Suspect]
     Active Substance: RITUXIMAB
     Dosage: 375 MILLIGRAM/SQ. METER
     Route: 042
     Dates: start: 20210831
  14. RITUXIMAB [Suspect]
     Active Substance: RITUXIMAB
     Dosage: UNK
  15. RITUXIMAB [Suspect]
     Active Substance: RITUXIMAB
     Dosage: AT 375 MG/M2, 1Q3W, ADDITIONAL INFORMATION: REGIMEN :1 CUMULATIVE DOSE TO FIRST REACTION: 464.2857 M
     Route: 042
     Dates: start: 20211006
  16. RITUXIMAB [Suspect]
     Active Substance: RITUXIMAB
     Dosage: 375 MG/M2, 1Q3W, CUMULATIVE DOSE TO FIRST REACTION: 464.2857 MG/M2
     Route: 042
     Dates: start: 20211006
  17. RITUXIMAB [Suspect]
     Active Substance: RITUXIMAB
     Dosage: 375 MG/M2, 1Q3W, CUMULATIVE DOSE TO FIRST REACTION: 178.57143 MG/M2, REGIMEN : 1
     Route: 042
     Dates: start: 20210831
  18. RITUXIMAB [Suspect]
     Active Substance: RITUXIMAB
     Dosage: 375 MG, 1Q3W (ADDITIONAL INFORMATION: REGIMEN 1)
     Route: 042
     Dates: start: 20211006
  19. RITUXIMAB [Suspect]
     Active Substance: RITUXIMAB
     Dosage: 375 MG, 1Q3W (ADDITIONAL INFORMATION: REGIMEN 1) CUMULATIVE DOSE TO FIRST REACTION: 464.2857 MG/M2
     Route: 042
     Dates: start: 20210831
  20. RITUXIMAB [Suspect]
     Active Substance: RITUXIMAB
     Dosage: UNK(PHARMACEUTICAL DOSE FORM: 16)
     Dates: start: 201912, end: 202004
  21. RITUXIMAB [Suspect]
     Active Substance: RITUXIMAB
     Dosage: UNK (ADDITIONAL INFORMATION ON DRUG: REGIMEN: 1)
  22. RITUXIMAB [Suspect]
     Active Substance: RITUXIMAB
     Dosage: UNK (ADDITIONAL INFORMATION ON DRUG: REGIMEN: 1)
  23. RITUXIMAB [Suspect]
     Active Substance: RITUXIMAB
     Dosage: UNK (ADDITIONAL INFORMATION ON DRUG: REGIMEN: 1)
  24. RITUXIMAB [Suspect]
     Active Substance: RITUXIMAB
     Dosage: 375 MG/M2, EVERY 3 WEEKS
     Route: 042
     Dates: start: 20210831
  25. RITUXIMAB [Suspect]
     Active Substance: RITUXIMAB
     Dosage: 375 MG, 1Q3W (ADDITIONAL INFORMATION: REGIMEN 1 DRUG WITHDRAWN)
     Route: 042
     Dates: start: 20210831, end: 20210831
  26. RITUXIMAB [Suspect]
     Active Substance: RITUXIMAB
     Dosage: 375 MG/M2, 1Q3W ADDITIONAL INFORMATION ON DRUG: REGIMEN : 1
     Route: 042
     Dates: start: 20211006
  27. CARBOPLATIN [Suspect]
     Active Substance: CARBOPLATIN
     Indication: Diffuse large B-cell lymphoma stage II
     Dosage: (REGIMEN : 1; PHARMACEUTICAL DOSE FORM: 16)
     Route: 042
  28. CARBOPLATIN [Suspect]
     Active Substance: CARBOPLATIN
     Indication: Diffuse large B-cell lymphoma
     Dosage: (REGIMEN : 1; PHARMACEUTICAL DOSE FORM: 16)
     Route: 042
  29. CARBOPLATIN [Suspect]
     Active Substance: CARBOPLATIN
     Indication: Diffuse large B-cell lymphoma
     Dosage: (REGIMEN : 1; PHARMACEUTICAL DOSE FORM: 16)
  30. CARBOPLATIN [Suspect]
     Active Substance: CARBOPLATIN
     Indication: Diffuse large B-cell lymphoma
     Dosage: (REGIMEN : 1; PHARMACEUTICAL DOSE FORM: 16)
     Route: 042
  31. CARBOPLATIN [Suspect]
     Active Substance: CARBOPLATIN
     Dosage: UNK (PHARMACEUTICAL DOSE FORM: 16)
     Route: 042
  32. CARBOPLATIN [Suspect]
     Active Substance: CARBOPLATIN
     Dosage: 750 MG, 1Q3W (EVERY 3WEEKS)  (REGIMEN: 1; PHARMACEUTICAL DOSE FORM: 16)/ 750 MG, 1Q3W (EVERY 3WEEKS)
     Route: 042
     Dates: start: 20210901
  33. CARBOPLATIN [Suspect]
     Active Substance: CARBOPLATIN
     Dosage: 750 MG 1Q3W (PHARMACEUTICAL DOSE FORM: 16)
     Route: 042
     Dates: start: 20210901
  34. CARBOPLATIN [Suspect]
     Active Substance: CARBOPLATIN
     Dosage: 5 AUC, 750 MG 1Q3W  (PHARMACEUTICAL DOSE FORM: 16),
     Route: 042
     Dates: start: 20210901
  35. CARBOPLATIN [Suspect]
     Active Substance: CARBOPLATIN
     Dosage: UNK
     Route: 042
     Dates: start: 20210901
  36. CARBOPLATIN [Suspect]
     Active Substance: CARBOPLATIN
     Dosage: 5 AUC (ADDITIONAL INFORMATION: REGIMEN 1)
     Route: 042
     Dates: start: 20211006
  37. CARBOPLATIN [Suspect]
     Active Substance: CARBOPLATIN
     Dosage: 5 AUC (ADDITIONAL INFORMATION: REGIMEN 1)
     Route: 042
     Dates: start: 20211006
  38. CARBOPLATIN [Suspect]
     Active Substance: CARBOPLATIN
     Dosage: 5 AUC, 750 MG 1Q3W CUMULATIVE DOSE TO FIRST REACTION: 321.42856 MG
     Route: 042
     Dates: start: 20210901
  39. CARBOPLATIN [Suspect]
     Active Substance: CARBOPLATIN
     Dosage: 5 AUC, 750 MG 1Q3W (ADDITIONAL INFORMATION: REGIMEN:1) CUMULATIVE DOSE TO FIRST REACTION: 321.42856
     Route: 042
     Dates: start: 20210901
  40. CARBOPLATIN [Suspect]
     Active Substance: CARBOPLATIN
     Dosage: UNK, 1 CYCLE
     Route: 042
  41. CARBOPLATIN [Suspect]
     Active Substance: CARBOPLATIN
     Dosage: UNK
  42. CARBOPLATIN [Suspect]
     Active Substance: CARBOPLATIN
     Dosage: UNK
  43. CARBOPLATIN [Suspect]
     Active Substance: CARBOPLATIN
     Dosage: 5 AUC, 750 MG 1Q3W, PHARMACEUTICAL DOSE FORM:CONCENTRATE FOR SOLUTION FOR INFUSION
     Route: 042
     Dates: start: 20210901
  44. CARBOPLATIN [Suspect]
     Active Substance: CARBOPLATIN
     Dosage: 5 AUC, PHARMACEUTICAL DOSE FORM:CONCENTRATE FOR SOLUTION FOR INFUSION
     Route: 042
     Dates: start: 20211006
  45. CARBOPLATIN [Suspect]
     Active Substance: CARBOPLATIN
     Dosage: 5 AUC, 750 MG 1Q3W (ADDITIONAL INFORMATION ON DRUG : REGIMEN : 1 DRUG WITHDRAWN)
     Route: 042
     Dates: start: 20210901, end: 20210901
  46. CARBOPLATIN [Suspect]
     Active Substance: CARBOPLATIN
     Indication: Diffuse large B-cell lymphoma stage II
     Dosage: 5 AUC (REGIMEN : 1)
     Route: 042
     Dates: start: 20211006
  47. CARBOPLATIN [Suspect]
     Active Substance: CARBOPLATIN
     Dosage: 750 MG, EVERY 1 CYCLE (5 AUC, 750 MG 1Q3W; REGIMEN: 1)
     Route: 042
     Dates: start: 20210901
  48. CYTARABINE [Suspect]
     Active Substance: CYTARABINE
     Indication: Diffuse large B-cell lymphoma stage II
     Dosage: Q12H (REGIMEN : 1; PHARMACEUTICAL DOSE FORM: 374) CUMULATIVE DOSE TO FIRST REACTION: 36000.0 MG/M2
     Route: 042
     Dates: start: 20210901, end: 20210901
  49. CYTARABINE [Suspect]
     Active Substance: CYTARABINE
     Indication: Diffuse large B-cell lymphoma
     Dosage: 2000 12 HOURS MG/M2 EVERY (PHARMACEUTICAL DOSAGE FORM: 231)
     Route: 042
     Dates: start: 20210902
  50. CYTARABINE [Suspect]
     Active Substance: CYTARABINE
     Indication: Diffuse large B-cell lymphoma
     Dosage: Q12H (REGIMEN : 1; PHARMACEUTICAL DOSE FORM: 374) CUMULATIVE DOSE TO FIRST REACTION: 36000.0 MG/M2
     Route: 042
     Dates: start: 20210901, end: 20210901
  51. CYTARABINE [Suspect]
     Active Substance: CYTARABINE
     Indication: Diffuse large B-cell lymphoma
     Dosage: 2000 MG/M2 BID (PHARMACEUTICAL DOSE FORM: 231)
     Route: 042
     Dates: start: 20210902
  52. CYTARABINE [Suspect]
     Active Substance: CYTARABINE
     Dosage: 2000 MG/M2, BID (PHARMACEUTICAL DOSAGE FORM: 231) CUMULATIVE DOSE TO FIRST REACTION: 36000.0 MG/M2
     Route: 042
     Dates: start: 20210901, end: 20210901
  53. CYTARABINE [Suspect]
     Active Substance: CYTARABINE
     Dosage: 2000 MG/M2 EVERY 12 HOURS (PHARMACEUTICAL DOSAGE FORM: 231)
     Route: 042
     Dates: start: 20210902
  54. CYTARABINE [Suspect]
     Active Substance: CYTARABINE
     Dosage: 2000 MG/M2, EVERY 12 HOURS (DOSE FORM: 231)
     Route: 042
     Dates: start: 20210901
  55. CYTARABINE [Suspect]
     Active Substance: CYTARABINE
     Dosage: 2000 MG/M2, BID (REGIMEN : 1; PHARMACEUTICAL DOSAGE FORM: 231)
     Route: 042
     Dates: start: 20210902
  56. CYTARABINE [Suspect]
     Active Substance: CYTARABINE
     Dosage: 9  MG/M2, BID (2000 MG/M2 EVERY 12 HOURS) PHARMACEUTICAL DOSE FORM: 231
     Route: 042
     Dates: start: 20210901, end: 20210901
  57. CYTARABINE [Suspect]
     Active Substance: CYTARABINE
     Dosage: 9 MG/M2, BID (2000 MG/M2 EVERY 12 HOURS) PHARMACEUTICAL DOSE FORM: 231
     Route: 042
     Dates: start: 20210902
  58. CYTARABINE [Suspect]
     Active Substance: CYTARABINE
     Dosage: REGIMEN: 1; CUMULATIVE DOSE: 4000 MG/M2; PHARMACEUTICAL DOSAGE FORM: 231
  59. CYTARABINE [Suspect]
     Active Substance: CYTARABINE
     Dosage: REGIMEN: 1; CUMULATIVE DOSE: 4000 MG/M2; PHARMACEUTICAL DOSAGE FORM: 231
  60. CYTARABINE [Suspect]
     Active Substance: CYTARABINE
     Dosage: REGIMEN : 1, 1Q2H
     Route: 042
     Dates: start: 20210901, end: 20210902
  61. CYTARABINE [Suspect]
     Active Substance: CYTARABINE
     Dosage: 2000 MG/M2 EVERY 12 HOUR CUMULATIVE DOSE TO FIRST REACTION: 321.42856 MG
     Route: 042
     Dates: start: 20210901, end: 20210901
  62. CYTARABINE [Suspect]
     Active Substance: CYTARABINE
     Dosage: 2000 MG/M2 EVERY 12 HOUR CUMULATIVE DOSE TO FIRST REACTION: 321.42856 MG
     Route: 042
     Dates: start: 20210901, end: 20210901
  63. CYTARABINE [Suspect]
     Active Substance: CYTARABINE
     Dosage: 2000 MG/M2 EVERY 12 HOUR, 1
     Route: 042
     Dates: start: 20210902
  64. CYTARABINE [Suspect]
     Active Substance: CYTARABINE
     Dosage: 2000 MG/M2 EVERY 12 HOUR,
     Route: 042
     Dates: start: 20210902
  65. CYTARABINE [Suspect]
     Active Substance: CYTARABINE
     Dosage: 1000 MG/M2, 1Q2H (CUMULATIVE DOSE TO FIRST REACTION: 6000MG/M2)(ADDITIONAL INFORMATION: REGIMEN:1)
     Route: 042
     Dates: start: 20211006, end: 20211007
  66. CYTARABINE [Suspect]
     Active Substance: CYTARABINE
     Dosage: 2000 MG/M2, 1Q2H, CUMULATIVE DOSE: 4000MG/M2, ADDITIONAL INFORMATION: REGIMEN 1
     Route: 042
     Dates: start: 20210901, end: 20210902
  67. CYTARABINE [Suspect]
     Active Substance: CYTARABINE
     Dosage: 2000 MG/M2, EVERY 12 HOURS, CUMULATIVE DOSE: 36000 MG/M2, ADDITIONAL INFORMATION: REGIMEN 1
     Route: 042
     Dates: start: 20210901
  68. CYTARABINE [Suspect]
     Active Substance: CYTARABINE
     Dosage: 1000 MG/M2, 1Q2H
     Route: 042
     Dates: start: 20211006, end: 20211007
  69. CYTARABINE [Suspect]
     Active Substance: CYTARABINE
     Dosage: 2000 MG/M2, 1Q2H
     Route: 042
     Dates: start: 20210901, end: 20210902
  70. CYTARABINE [Suspect]
     Active Substance: CYTARABINE
     Dosage: 5 AUC
     Route: 042
     Dates: start: 20211006
  71. CYTARABINE [Suspect]
     Active Substance: CYTARABINE
     Dosage: 2000 MG/M2, 1Q2H (CUMULATIVE DOSE TO FIRST REACTION: 4000 MG/M2) (ADDITIONAL INFORMATION ON DRUG (FR
     Route: 042
     Dates: start: 20210901, end: 20210902
  72. CYTARABINE [Suspect]
     Active Substance: CYTARABINE
     Dosage: 2000 MG/M2, BID, (PHARMACEUTICAL DOSE FORM: SOLUTION FOR INJECTION)(CUMULATIVE DOSE TO FIRST REACTIO
     Route: 042
     Dates: start: 20210901, end: 20210902
  73. CYTARABINE [Suspect]
     Active Substance: CYTARABINE
     Dosage: REGIMEN 1: (CUMULATIVE DOSE TO FIRST REACTION: 6000 MG/M2)
  74. CYTARABINE [Suspect]
     Active Substance: CYTARABINE
     Indication: Diffuse large B-cell lymphoma stage II
     Dosage: 2000 MG/M2 (1Q2H)(REGIMEN : 1)(CUMULATIVE DOSE: 4000 MG/M2)(REGIMEN: 1 DRUG WITHDRAWN)
     Route: 042
     Dates: start: 20210901, end: 20210902
  75. CYTARABINE [Suspect]
     Active Substance: CYTARABINE
     Dosage: 2000 MG/M2 (1Q2H)(REGIMEN : 1)(CUMULATIVE DOSE: 4000 MG/M2)
     Route: 042
     Dates: start: 20210901, end: 20210902
  76. CYTARABINE [Suspect]
     Active Substance: CYTARABINE
     Dosage: 2000 MG/M2 (1Q2H)(REGIMEN : 1)(CUMULATIVE DOSE: 4000 MG/M2)
     Route: 042
     Dates: start: 20210901, end: 20210902
  77. CYTARABINE [Suspect]
     Active Substance: CYTARABINE
     Dosage: 2000 MG/M2 (1Q2H)(REGIMEN : 1)(CUMULATIVE DOSE: 4000 MG/M2)
     Route: 042
     Dates: start: 20210901, end: 20210902
  78. CYTARABINE [Suspect]
     Active Substance: CYTARABINE
     Dosage: 2000 MG/M2 (1Q2H)(REGIMEN : 1)(CUMULATIVE DOSE: 4000 MG/M2)
     Route: 042
     Dates: start: 20210901, end: 20210902
  79. CYTARABINE [Suspect]
     Active Substance: CYTARABINE
     Dosage: 1000 MG/M2 (1Q2H)(REGIMEN: 1)
     Route: 042
     Dates: start: 20211006, end: 20211007
  80. CYTARABINE [Suspect]
     Active Substance: CYTARABINE
     Dosage: 1000 MG/M2 (1Q2H)(REGIMEN: 1)
     Route: 042
     Dates: start: 20211006, end: 20211007
  81. CYTARABINE [Suspect]
     Active Substance: CYTARABINE
     Dosage: 1000 MG/M2 (1Q2H)(REGIMEN: 1)
     Route: 042
     Dates: start: 20211006, end: 20211007
  82. CYTARABINE [Suspect]
     Active Substance: CYTARABINE
     Dosage: 1000 MG/M2 (1Q2H)(REGIMEN: 1)
     Route: 042
     Dates: start: 20211006, end: 20211007
  83. CYTARABINE [Suspect]
     Active Substance: CYTARABINE
     Dosage: 1000 MG/M2 (1Q2H)(REGIMEN: 1)
     Route: 042
     Dates: start: 20211006, end: 20211007
  84. CYTARABINE [Suspect]
     Active Substance: CYTARABINE
     Dosage: 2000 MG/M2, EVERY 12 HOURS (CUMULATIVE DOSE: 36000 MG/M2)(REGIMEN: 1)
     Route: 042
     Dates: start: 20210901
  85. CYTARABINE [Suspect]
     Active Substance: CYTARABINE
     Dosage: 16MG EVERY 1 DAY, SINGLE (CUMULATIVE DOSE TO FIRST REACTION: 192.0 MG)
     Route: 042
     Dates: start: 20210922, end: 20210922
  86. CYTARABINE [Suspect]
     Active Substance: CYTARABINE
     Dosage: 16MG EVERY 1 DAY, SINGLE (CUMULATIVE DOSE TO FIRST REACTION: 192.0 MG)
     Route: 042
     Dates: start: 20210922, end: 20210922
  87. CYTARABINE [Suspect]
     Active Substance: CYTARABINE
     Dosage: 16MG EVERY 1 DAY, SINGLE (CUMULATIVE DOSE TO FIRST REACTION: 192.0 MG)
     Route: 042
     Dates: start: 20210922, end: 20210922
  88. CYTARABINE [Suspect]
     Active Substance: CYTARABINE
     Dosage: 16MG EVERY 1 DAY, SINGLE (CUMULATIVE DOSE TO FIRST REACTION: 192.0 MG)
     Route: 042
     Dates: start: 20210922, end: 20210922
  89. CYTARABINE [Suspect]
     Active Substance: CYTARABINE
     Dosage: 16MG EVERY 1 DAY, SINGLE (CUMULATIVE DOSE TO FIRST REACTION: 192.0 MG)
     Route: 042
     Dates: start: 20210922, end: 20210922
  90. CYTARABINE [Suspect]
     Active Substance: CYTARABINE
     Dosage: 2000 MG/M2 (1Q2H) (CUMULATIVE DOSE TO FIRST REACTION: 4000 MG/M2) (ADDITIONAL INFORMATION ON DRUG: R
     Route: 042
     Dates: start: 20210902
  91. CYTARABINE [Suspect]
     Active Substance: CYTARABINE
     Indication: Diffuse large B-cell lymphoma stage II
     Dosage: REGIMEN : 1 CUMULATIVE DOSE TO FIRST REACTION: 6000 MG/M2
     Route: 042
  92. CYTARABINE [Suspect]
     Active Substance: CYTARABINE
     Indication: Diffuse large B-cell lymphoma
     Dosage: REGIMEN : 1 CUMULATIVE DOSE TO FIRST REACTION: 4000 MG/M2
  93. CYTARABINE [Suspect]
     Active Substance: CYTARABINE
     Dosage: REGIMEN : 1 CUMULATIVE DOSE TO FIRST REACTION: 6000 MG/M2
  94. CYTARABINE [Suspect]
     Active Substance: CYTARABINE
     Dosage: 2000 MG/M2 (REGIMEN : 1 CUMULATIVE DOSE TO FIRST REACTION: 6000 MG/M2)/ 2000 MG/M2, BID
     Route: 042
     Dates: start: 20210901, end: 20210902
  95. CYTARABINE [Suspect]
     Active Substance: CYTARABINE
     Dosage: REGIMEN : 1
  96. DALTEPARIN [Suspect]
     Active Substance: DALTEPARIN
     Indication: Prophylaxis
     Dosage: 5000 UNITS, QD (ADDITIONAL INFORMATION: REGIMEN 1 FRAGMIN)
     Route: 058
     Dates: start: 202107, end: 20210908
  97. DEXAMETHASONE [Suspect]
     Active Substance: DEXAMETHASONE
     Indication: Diffuse large B-cell lymphoma stage II
     Dosage: SINGLE (PHARMACEUTICAL DOSE FORM: 169)
     Route: 048
     Dates: start: 20210831, end: 20210831
  98. DEXAMETHASONE [Suspect]
     Active Substance: DEXAMETHASONE
     Indication: Diffuse large B-cell lymphoma
     Dosage: 16 MG (PHARMACEUTICAL DOSE FORM: 169)
     Route: 042
     Dates: start: 20210908
  99. DEXAMETHASONE [Suspect]
     Active Substance: DEXAMETHASONE
     Indication: Diffuse large B-cell lymphoma
     Dosage: 16 MG, SINGLE (PHARMACEUTICAL DOSAGE FORM: 169) CUMULATIVE DOSE TO FIRST REACTION: 32.0 MG
     Route: 042
     Dates: start: 20210908, end: 20210908
  100. DEXAMETHASONE [Suspect]
     Active Substance: DEXAMETHASONE
     Dosage: 40 MG QD (PHARMACEUTICAL DOSE: 169) CUMULATIVE DOSE TO FIRST REACTION: 320.0 MG
     Route: 048
     Dates: start: 20210902, end: 20210903
  101. DEXAMETHASONE [Suspect]
     Active Substance: DEXAMETHASONE
     Dosage: 40 MG, SINGLE (PHARMACEUTICAL DOSE FORM: 169)
     Route: 048
     Dates: start: 20210831, end: 20210831
  102. DEXAMETHASONE [Suspect]
     Active Substance: DEXAMETHASONE
     Dosage: 16 MG AT 15: 20 HRS (PHARMACEUTICAL DOSE FORM: 169)
     Route: 048
     Dates: start: 20210908
  103. DEXAMETHASONE [Suspect]
     Active Substance: DEXAMETHASONE
     Dosage: 16 MG (PHARMACEUTICAL DOSAGE FORM: 169)
     Route: 048
     Dates: start: 20210908
  104. DEXAMETHASONE [Suspect]
     Active Substance: DEXAMETHASONE
     Dosage: 16 MG, SINGLE (PHARMACEUTICAL DOSAGE FORM: 169)
     Route: 042
     Dates: start: 20210922, end: 20210922
  105. DEXAMETHASONE [Suspect]
     Active Substance: DEXAMETHASONE
     Dosage: 16 MG AT 15: 20 HRS (PHARMACEUTICAL DOSE FORM: 169)
     Route: 048
     Dates: start: 20210909, end: 20210911
  106. DEXAMETHASONE [Suspect]
     Active Substance: DEXAMETHASONE
     Dosage: 16 MG, QD (PHARMACEUTICAL DOSE FORM: 169)
     Route: 048
     Dates: start: 20210923, end: 20210925
  107. DEXAMETHASONE [Suspect]
     Active Substance: DEXAMETHASONE
     Dosage: 16 MG, QD (PHARMACEUTICAL DOSE FORM: 169) CUMULATIVE DOSE TO FIRST REACTION: 32.0 MG
     Route: 042
     Dates: start: 20210908, end: 20210908
  108. DEXAMETHASONE [Suspect]
     Active Substance: DEXAMETHASONE
     Dosage: 40 MG, QD (PHARMACEUTICAL DOSE FORM: 169) CUMULATIVE DOSE TO FIRST REACTION: 320.0 MG
     Route: 048
     Dates: start: 20210902, end: 20210903
  109. DEXAMETHASONE [Suspect]
     Active Substance: DEXAMETHASONE
     Dosage: 16 MG, QD (DOSE FORM: 169)CUMULATIVE DOSE TO FIRST REACTION: 16.0 MG
     Route: 048
     Dates: start: 20210909, end: 20210911
  110. DEXAMETHASONE [Suspect]
     Active Substance: DEXAMETHASONE
     Dosage: 40 MILLIGRAM, SINGLE, CUMULATIVE DOSE TO FIRST REACTION: 1160.0 MG
     Route: 048
     Dates: start: 20211009
  111. DEXAMETHASONE [Suspect]
     Active Substance: DEXAMETHASONE
     Dosage: 16 MILLIGRAM, SINGLE, CUMULATIVE DOSE TO FIRST REACTION: 192.0 MG
     Route: 048
     Dates: start: 20210922, end: 20210922
  112. DEXAMETHASONE [Suspect]
     Active Substance: DEXAMETHASONE
     Dosage: 16 MILLIGRAM, SINGLE, CUMULATIVE DOSE TO FIRST REACTION: 32.0 MG
     Route: 048
     Dates: start: 20210908
  113. DEXAMETHASONE [Suspect]
     Active Substance: DEXAMETHASONE
     Dosage: 40 MILLIGRAM, QD, CUMULATIVE DOSE TO FIRST REACTION: 320.0 MG
     Route: 048
     Dates: start: 20210902, end: 20210903
  114. DEXAMETHASONE [Suspect]
     Active Substance: DEXAMETHASONE
     Dosage: 16 MILLIGRAM, SINGLE, CUMULATIVE DOSE TO FIRST REACTION: 208.0 MG
     Route: 048
     Dates: start: 20210923
  115. DEXAMETHASONE [Suspect]
     Active Substance: DEXAMETHASONE
     Dosage: 16 MILLIGRAM, SINGLE, CUMULATIVE DOSE TO FIRST REACTION: 32.0 MG
     Route: 042
     Dates: start: 20210908, end: 20210908
  116. DEXAMETHASONE [Suspect]
     Active Substance: DEXAMETHASONE
     Dosage: 16 MILLIGRAM, SINGLE, CUMULATIVE DOSE TO FIRST REACTION: 32.0 MG
     Route: 042
     Dates: start: 20210908, end: 20210908
  117. DEXAMETHASONE [Suspect]
     Active Substance: DEXAMETHASONE
     Dosage: 16 MILLIGRAM, SINGLE, CUMULATIVE DOSE TO FIRST REACTION: 32.0 MG
     Route: 042
     Dates: start: 20210908, end: 20210908
  118. DEXAMETHASONE [Suspect]
     Active Substance: DEXAMETHASONE
     Dosage: 40 MILLIGRAM, QD, CUMULATIVE DOSE TO FIRST REACTION: 1120.0 MG
     Route: 048
     Dates: start: 20211008
  119. DEXAMETHASONE [Suspect]
     Active Substance: DEXAMETHASONE
     Dosage: 16 MILLIGRAM, SINGLE, CUMULATIVE DOSE TO FIRST REACTION:16.0 MG
     Route: 048
     Dates: start: 20210909, end: 20210911
  120. DEXAMETHASONE [Suspect]
     Active Substance: DEXAMETHASONE
     Dosage: 16 MILLIGRAM, SINGLE, CUMULATIVE DOSE TO FIRST REACTION:16.0 MG
     Route: 048
     Dates: start: 20210909, end: 20210911
  121. DEXAMETHASONE [Suspect]
     Active Substance: DEXAMETHASONE
     Dosage: 16 MILLIGRAM, SINGLE, CUMULATIVE DOSE TO FIRST REACTION:16.0 MG
     Route: 048
     Dates: start: 20210909, end: 20210911
  122. DEXAMETHASONE [Suspect]
     Active Substance: DEXAMETHASONE
     Dosage: 16 MILLIGRAM, SINGLE, CUMULATIVE DOSE TO FIRST REACTION:16.0 MG
     Route: 048
     Dates: start: 20210909, end: 20210911
  123. DEXAMETHASONE [Suspect]
     Active Substance: DEXAMETHASONE
     Dosage: 16MG EVERY 1 SINGLE MOST RECENT DOSE RECEIVED ON 25/SEP/2021CUMULATIVE DOSE TO FIRST REACTION: 208.0
     Route: 048
     Dates: start: 20210923
  124. DEXAMETHASONE [Suspect]
     Active Substance: DEXAMETHASONE
     Dosage: 16MG EVERY 1 SINGLE MOST RECENT DOSE RECEIVED ON 25/SEP/2021CUMULATIVE DOSE TO FIRST REACTION: 208.0
     Route: 048
     Dates: start: 20210923
  125. DEXAMETHASONE [Suspect]
     Active Substance: DEXAMETHASONE
     Dosage: 16MG EVERY 1 SINGLE MOST RECENT DOSE RECEIVED ON 25/SEP/2021CUMULATIVE DOSE TO FIRST REACTION: 208.0
     Route: 048
     Dates: start: 20210923
  126. DEXAMETHASONE [Suspect]
     Active Substance: DEXAMETHASONE
     Dosage: 16MG EVERY 1 SINGLE MOST RECENT DOSE RECEIVED ON 25/SEP/2021CUMULATIVE DOSE TO FIRST REACTION: 208.0
     Route: 048
     Dates: start: 20210923
  127. DEXAMETHASONE [Suspect]
     Active Substance: DEXAMETHASONE
     Dosage: 16MG EVERY 1 SINGLE MOST RECENT DOSE RECEIVED ON 25/SEP/2021CUMULATIVE DOSE TO FIRST REACTION: 208.0
     Route: 048
     Dates: start: 20210923
  128. DEXAMETHASONE [Suspect]
     Active Substance: DEXAMETHASONE
     Dosage: 40 MILLIGRAM, QD, CUMULATIVE DOSE TO FIRST REACTION: 320.0 MG
     Route: 048
     Dates: start: 20210902, end: 20210903
  129. DEXAMETHASONE [Suspect]
     Active Substance: DEXAMETHASONE
     Dosage: 40 MILLIGRAM, QD, CUMULATIVE DOSE TO FIRST REACTION: 320.0 MG
     Route: 048
     Dates: start: 20210902, end: 20210903
  130. DEXAMETHASONE [Suspect]
     Active Substance: DEXAMETHASONE
     Dosage: 40 MILLIGRAM, SINGLE, CUMULATIVE DOSE TO FIRST REACTION: 1160.0 MG
     Route: 048
     Dates: start: 20211009
  131. DEXAMETHASONE [Suspect]
     Active Substance: DEXAMETHASONE
     Dosage: 40 MILLIGRAM, SINGLE, CUMULATIVE DOSE TO FIRST REACTION: 1160.0 MG
     Route: 048
     Dates: start: 20211009
  132. DEXAMETHASONE [Suspect]
     Active Substance: DEXAMETHASONE
     Dosage: 40 MILLIGRAM, SINGLE, CUMULATIVE DOSE TO FIRST REACTION: 1160.0 MG
     Route: 048
     Dates: start: 20211009
  133. DEXAMETHASONE [Suspect]
     Active Substance: DEXAMETHASONE
     Dosage: 40 MILLIGRAM, SINGLE, CUMULATIVE DOSE TO FIRST REACTION: 1160.0 MG
     Route: 048
     Dates: start: 20211009
  134. DEXAMETHASONE [Suspect]
     Active Substance: DEXAMETHASONE
     Dosage: 16 MG, EVERY 1 DAY
     Route: 048
     Dates: start: 20220914, end: 20220917
  135. DEXAMETHASONE [Suspect]
     Active Substance: DEXAMETHASONE
     Dosage: 40 MG, EVERY 1 DAY (SINGLE)
     Route: 048
     Dates: start: 20210901, end: 20210903
  136. DEXAMETHASONE [Suspect]
     Active Substance: DEXAMETHASONE
     Indication: Diffuse large B-cell lymphoma
     Dosage: 1 DOSAGE FORM, QD
     Route: 048
     Dates: start: 20210909, end: 20210911
  137. DEXAMETHASONE [Suspect]
     Active Substance: DEXAMETHASONE
     Indication: Diffuse large B-cell lymphoma stage II
     Dosage: 1 DOSAGE FORM, QD
     Route: 048
     Dates: start: 20210909, end: 20210911
  138. DEXAMETHASONE [Suspect]
     Active Substance: DEXAMETHASONE
     Dosage: 1 DOSAGE FORM, QD
     Route: 048
     Dates: start: 20210909, end: 20210911
  139. DEXAMETHASONE [Suspect]
     Active Substance: DEXAMETHASONE
     Dosage: 1 DOSAGE FORM, QD
     Route: 048
     Dates: start: 20210909, end: 20210911
  140. DEXAMETHASONE [Suspect]
     Active Substance: DEXAMETHASONE
     Dosage: 1 DOSAGE FORM, QD
     Route: 048
     Dates: start: 20210909, end: 20210911
  141. DEXAMETHASONE [Suspect]
     Active Substance: DEXAMETHASONE
     Dosage: 16 MG, SINGLE CUMULATIVE DOSE TO FIRST REACTION: 32.0 MG
     Route: 048
     Dates: start: 20210908, end: 20210908
  142. DEXAMETHASONE [Suspect]
     Active Substance: DEXAMETHASONE
     Dosage: 16 MG CUMULATIVE DOSE TO FIRST REACTION: 32.0 MG
     Route: 048
     Dates: start: 20210908, end: 20210908
  143. DEXAMETHASONE [Suspect]
     Active Substance: DEXAMETHASONE
     Dosage: 16 MG CUMULATIVE DOSE TO FIRST REACTION: 32.0 MG
     Route: 048
     Dates: start: 20210908, end: 20210908
  144. DEXAMETHASONE [Suspect]
     Active Substance: DEXAMETHASONE
     Dosage: 16 MG CUMULATIVE DOSE TO FIRST REACTION: 32.0 MG
     Route: 048
     Dates: start: 20210908, end: 20210908
  145. DEXAMETHASONE [Suspect]
     Active Substance: DEXAMETHASONE
     Dosage: 16 MG CUMULATIVE DOSE TO FIRST REACTION: 32.0 MG
     Route: 048
     Dates: start: 20210908, end: 20210908
  146. DEXAMETHASONE [Suspect]
     Active Substance: DEXAMETHASONE
     Dosage: 1 DOSAGE FORM, QD
     Route: 048
     Dates: start: 20210902, end: 20210903
  147. DEXAMETHASONE [Suspect]
     Active Substance: DEXAMETHASONE
     Dosage: 1 DOSAGE FORM, QD
     Route: 048
     Dates: start: 20210902, end: 20210903
  148. DEXAMETHASONE [Suspect]
     Active Substance: DEXAMETHASONE
     Dosage: 1 DOSAGE FORM, QD
     Route: 048
     Dates: start: 20210902, end: 20210903
  149. DEXAMETHASONE [Suspect]
     Active Substance: DEXAMETHASONE
     Dosage: 1 DOSAGE FORM, QD
     Route: 048
     Dates: start: 20210902, end: 20210903
  150. DEXAMETHASONE [Suspect]
     Active Substance: DEXAMETHASONE
     Dosage: 1 DOSAGE FORM, QD
     Route: 048
     Dates: start: 20210902, end: 20210903
  151. DEXAMETHASONE [Suspect]
     Active Substance: DEXAMETHASONE
     Dosage: 1 DOSAGE FORM, QD
     Route: 048
     Dates: start: 20210923, end: 20210925
  152. DEXAMETHASONE [Suspect]
     Active Substance: DEXAMETHASONE
     Dosage: 1 DOSAGE FORM, QD
     Route: 048
     Dates: start: 20210923, end: 20210925
  153. DEXAMETHASONE [Suspect]
     Active Substance: DEXAMETHASONE
     Dosage: 1 DOSAGE FORM, QD
     Route: 048
     Dates: start: 20210923, end: 20210925
  154. DEXAMETHASONE [Suspect]
     Active Substance: DEXAMETHASONE
     Dosage: 1 DOSAGE FORM, QD
     Route: 048
     Dates: start: 20210923, end: 20210925
  155. DEXAMETHASONE [Suspect]
     Active Substance: DEXAMETHASONE
     Dosage: 1 DOSAGE FORM, QD
     Route: 048
     Dates: start: 20210923, end: 20210925
  156. DEXAMETHASONE [Suspect]
     Active Substance: DEXAMETHASONE
     Dosage: 16 MG CUMULATIVE DOSE TO FIRST REACTION: 1120.0 MG
     Route: 048
     Dates: start: 20210922, end: 20210922
  157. DEXAMETHASONE [Suspect]
     Active Substance: DEXAMETHASONE
     Dosage: 16 MG CUMULATIVE DOSE TO FIRST REACTION: 1120.0 MG
     Route: 048
     Dates: start: 20210922, end: 20210922
  158. DEXAMETHASONE [Suspect]
     Active Substance: DEXAMETHASONE
     Dosage: 16 MG CUMULATIVE DOSE TO FIRST REACTION: 1120.0 MG
     Route: 048
     Dates: start: 20210922, end: 20210922
  159. DEXAMETHASONE [Suspect]
     Active Substance: DEXAMETHASONE
     Dosage: 16 MG CUMULATIVE DOSE TO FIRST REACTION: 1120.0 MG
     Route: 048
     Dates: start: 20210922, end: 20210922
  160. DEXAMETHASONE [Suspect]
     Active Substance: DEXAMETHASONE
     Dosage: 16 MGCUMULATIVE DOSE TO FIRST REACTION: 1120.0 MG
     Route: 048
     Dates: start: 20210922, end: 20210922
  161. DEXAMETHASONE [Suspect]
     Active Substance: DEXAMETHASONE
     Dosage: 40 MG SINGLE CUMULATIVE DOSE TO FIRST REACTION: 400.0 MG
     Route: 048
     Dates: start: 20210831, end: 20210831
  162. DEXAMETHASONE [Suspect]
     Active Substance: DEXAMETHASONE
     Dosage: 40 MG SINGLE CUMULATIVE DOSE TO FIRST REACTION: 400.0 MG
     Route: 048
     Dates: start: 20210831, end: 20210831
  163. DEXAMETHASONE [Suspect]
     Active Substance: DEXAMETHASONE
     Dosage: 40 MG SINGLE CUMULATIVE DOSE TO FIRST REACTION: 400.0 MG
     Route: 048
     Dates: start: 20210831, end: 20210831
  164. DEXAMETHASONE [Suspect]
     Active Substance: DEXAMETHASONE
     Dosage: 40 MG SINGLE CUMULATIVE DOSE TO FIRST REACTION: 400.0 MG
     Route: 048
     Dates: start: 20210831, end: 20210831
  165. DEXAMETHASONE [Suspect]
     Active Substance: DEXAMETHASONE
     Dosage: 40 MG SINGLE CUMULATIVE DOSE TO FIRST REACTION: 400.0 MG
     Route: 048
     Dates: start: 20210831, end: 20210831
  166. DEXAMETHASONE [Suspect]
     Active Substance: DEXAMETHASONE
     Dosage: 16 MG (SINGLE), CUMULATIVE DOSE: 144.49MG
     Route: 048
     Dates: start: 20210909, end: 20210911
  167. DEXAMETHASONE [Suspect]
     Active Substance: DEXAMETHASONE
     Dosage: 40 MG
     Route: 048
     Dates: start: 20211009
  168. DEXAMETHASONE [Suspect]
     Active Substance: DEXAMETHASONE
     Dosage: 16 MG (SINGLE), ADDITIONAL INFORMATION: REGIMEN 4
     Route: 048
     Dates: start: 20210908
  169. DEXAMETHASONE [Suspect]
     Active Substance: DEXAMETHASONE
     Dosage: 16 MG (SINGLE), ADDITIONAL INFORMATION: REGIMEN 3
     Route: 042
     Dates: start: 20210908, end: 20210908
  170. DEXAMETHASONE [Suspect]
     Active Substance: DEXAMETHASONE
     Dosage: 40 MG (SINGLE) CUMULATIVE DOSE TO FIRST REACTION: 1120.0 MG
     Route: 048
     Dates: start: 20211008
  171. DEXAMETHASONE [Suspect]
     Active Substance: DEXAMETHASONE
     Dosage: 40 MG (SINGLE)
     Route: 048
     Dates: start: 20210902, end: 20210903
  172. DEXAMETHASONE [Suspect]
     Active Substance: DEXAMETHASONE
     Dosage: 16 MG (SINGLE), CUMULATIVE DOSE: 144.49 MG
     Route: 048
     Dates: start: 20210923, end: 20210925
  173. DEXAMETHASONE [Suspect]
     Active Substance: DEXAMETHASONE
     Dosage: 16 MG (SINGLE), CUMULATIVE DOSE: 144.49 MG
     Route: 048
     Dates: start: 20210922, end: 20210922
  174. DEXAMETHASONE [Suspect]
     Active Substance: DEXAMETHASONE
     Dosage: 40 MG QD, CUMULATIVE DOSE TO FIRST REACTION: 1480.0 MG
     Route: 048
     Dates: start: 20210902, end: 20210903
  175. DEXAMETHASONE [Suspect]
     Active Substance: DEXAMETHASONE
     Dosage: 40 MG QD, CUMULATIVE DOSE TO FIRST REACTION: 1480.0 MG
     Route: 048
     Dates: start: 20210902, end: 20210903
  176. DEXAMETHASONE [Suspect]
     Active Substance: DEXAMETHASONE
     Dosage: 40 MG QD, CUMULATIVE DOSE TO FIRST REACTION: 1480.0 MG
     Route: 048
     Dates: start: 20210902, end: 20210903
  177. DEXAMETHASONE [Suspect]
     Active Substance: DEXAMETHASONE
     Dosage: 40 MG QD, CUMULATIVE DOSE TO FIRST REACTION: 1480.0 MG
     Route: 048
     Dates: start: 20210902, end: 20210903
  178. DEXAMETHASONE [Suspect]
     Active Substance: DEXAMETHASONE
     Dosage: 16 MG, CUMULATIVE DOSE TO FIRST REACTION: 928.0 MG
     Route: 048
     Dates: start: 20210923, end: 20210925
  179. DEXAMETHASONE [Suspect]
     Active Substance: DEXAMETHASONE
     Dosage: 16 MG, CUMULATIVE DOSE TO FIRST REACTION: 928.0 MG
     Route: 048
     Dates: start: 20210923, end: 20210925
  180. DEXAMETHASONE [Suspect]
     Active Substance: DEXAMETHASONE
     Dosage: 16 MG, CUMULATIVE DOSE TO FIRST REACTION: 928.0 MG
     Route: 048
     Dates: start: 20210923, end: 20210925
  181. DEXAMETHASONE [Suspect]
     Active Substance: DEXAMETHASONE
     Dosage: 16 MG, CUMULATIVE DOSE TO FIRST REACTION: 928.0 MG
     Route: 048
     Dates: start: 20210923, end: 20210925
  182. DEXAMETHASONE [Suspect]
     Active Substance: DEXAMETHASONE
     Dosage: 16 MG, CUMULATIVE DOSE TO FIRST REACTION: 928.0 MG
     Route: 048
     Dates: start: 20210923, end: 20210925
  183. DEXAMETHASONE [Suspect]
     Active Substance: DEXAMETHASONE
     Dosage: 16 MG, QD, CUMULATIVE DOSE TO FIRST REACTION: 704.0 MG, DOSAGE TEXT: AT 15: 20 HRS
     Route: 048
     Dates: start: 20210909, end: 20210911
  184. DEXAMETHASONE [Suspect]
     Active Substance: DEXAMETHASONE
     Dosage: 16 MG, QD, CUMULATIVE DOSE TO FIRST REACTION: 704.0 MG, DOSAGE TEXT: AT 15: 20 HRS
     Route: 048
     Dates: start: 20210909, end: 20210911
  185. DEXAMETHASONE [Suspect]
     Active Substance: DEXAMETHASONE
     Dosage: 16 MG, QD, CUMULATIVE DOSE TO FIRST REACTION: 704.0 MG, DOSAGE TEXT: AT 15: 20 HRS
     Route: 048
     Dates: start: 20210909, end: 20210911
  186. DEXAMETHASONE [Suspect]
     Active Substance: DEXAMETHASONE
     Indication: Diffuse large B-cell lymphoma
     Dosage: 16 MG, QD, CUMULATIVE DOSE TO FIRST REACTION: 704.0 MG, DOSAGE TEXT: AT 15: 20 HRS
     Route: 048
     Dates: start: 20210909, end: 20210911
  187. DEXAMETHASONE [Suspect]
     Active Substance: DEXAMETHASONE
     Indication: Diffuse large B-cell lymphoma stage II
     Dosage: 16 MG, QD, CUMULATIVE DOSE TO FIRST REACTION: 704.0 MG, DOSAGE TEXT: AT 15: 20 HRS
     Route: 048
     Dates: start: 20210909, end: 20210911
  188. DEXAMETHASONE [Suspect]
     Active Substance: DEXAMETHASONE
     Indication: Diffuse large B-cell lymphoma
     Dosage: SINGLE (CUMULATIVE DOSE: 144.49MG)
     Route: 048
     Dates: start: 20210923, end: 20210925
  189. DEXAMETHASONE [Suspect]
     Active Substance: DEXAMETHASONE
     Dosage: 16 MG, QD
     Route: 048
     Dates: start: 20220914, end: 20220917
  190. DEXAMETHASONE [Suspect]
     Active Substance: DEXAMETHASONE
     Dosage: 40 MG (SINGLE)
     Route: 048
     Dates: start: 20210831, end: 20210831
  191. DEXAMETHASONE [Suspect]
     Active Substance: DEXAMETHASONE
     Dosage: 40 MG, QD (CUMULATIVE DOSE TO FIRST REACTION: 144.49 MG )
     Route: 048
     Dates: start: 20210902, end: 20210903
  192. DEXAMETHASONE [Suspect]
     Active Substance: DEXAMETHASONE
     Dosage: 40 MG, (SINGLE) (CUMULATIVE DOSE TO FIRST REACTION: 144.49 MG )
     Route: 048
     Dates: start: 20210831, end: 20210831
  193. DEXAMETHASONE [Suspect]
     Active Substance: DEXAMETHASONE
     Dosage: 16 MG, SINGLE (CUMULATIVE DOSE: 144.49MG)
     Route: 042
     Dates: start: 20210908, end: 20210908
  194. DEXAMETHASONE [Suspect]
     Active Substance: DEXAMETHASONE
     Dosage: 16 MG, SINGLE (CUMULATIVE DOSE: 144.49MG)
     Route: 042
     Dates: start: 20210922, end: 20210922
  195. DEXAMETHASONE [Suspect]
     Active Substance: DEXAMETHASONE
     Dosage: 16 MG, SINGLE (PHARMACEUTICAL DOSE FORM:ORAL SOLUTION )
     Route: 048
     Dates: start: 20220914, end: 20220917
  196. DEXAMETHASONE [Suspect]
     Active Substance: DEXAMETHASONE
     Dosage: 40 MG (SINGLE)PHARMACEUTICAL DOSE FORM: ORAL SOLUTION
     Route: 048
     Dates: start: 20211008
  197. DEXAMETHASONE [Suspect]
     Active Substance: DEXAMETHASONE
     Dosage: 16 MG, QD (ADDITIONAL INFORMATION ON DRUG : DRUG WITHDRAWN)
     Route: 048
     Dates: start: 20220914, end: 20220917
  198. DEXAMETHASONE [Suspect]
     Active Substance: DEXAMETHASONE
     Dosage: 40 MG (SINGLE)
     Route: 048
     Dates: start: 20211008
  199. DEXAMETHASONE [Suspect]
     Active Substance: DEXAMETHASONE
     Dosage: 16MG, QD (CUMULATIVE DOSE TO FIRST REACTION: 144.49MG)
     Route: 048
     Dates: start: 20210923, end: 20210925
  200. DEXAMETHASONE [Suspect]
     Active Substance: DEXAMETHASONE
     Dosage: 16MG AT 15:20 HRS (CUMULATIVE DOSE AT FIRST REACTION: 144.49 MG)
     Route: 048
     Dates: start: 20210909, end: 20210911
  201. DEXAMETHASONE [Suspect]
     Active Substance: DEXAMETHASONE
     Indication: Diffuse large B-cell lymphoma stage II
     Dosage: 40 MG (SINGLE)
     Route: 048
     Dates: start: 20210831, end: 20210831
  202. DEXAMETHASONE [Suspect]
     Active Substance: DEXAMETHASONE
     Dosage: 40 MILLIGRAM (SINGLE)
     Route: 048
     Dates: start: 20210902, end: 20210903
  203. DEXAMETHASONE [Suspect]
     Active Substance: DEXAMETHASONE
     Dosage: 16 MG, (SINGLE), (CUMULATIVE DOSE TO FIRST REACTION: 144.49 MG)
     Route: 048
     Dates: start: 20210923, end: 20210925
  204. DEXAMETHASONE [Suspect]
     Active Substance: DEXAMETHASONE
     Dosage: 40 MILLIGRAM, (SINGLE) (ADDITIONAL INFORMATION ON DRUG : REGIMEN: 2)
     Route: 048
     Dates: start: 20210901, end: 20210903
  205. DEXAMETHASONE [Suspect]
     Active Substance: DEXAMETHASONE
     Dosage: 40 MILLIGRAM (SINGLE) (ADDITIONAL INFORMATION ON DRUG: REGIMEN: 2 DRUG WITHDRAWN)
     Route: 048
     Dates: start: 20210901, end: 20210903
  206. DEXAMETHASONE [Suspect]
     Active Substance: DEXAMETHASONE
     Dosage: SINGLE (ADDITIONAL INFORMATION ON DRUG: DRUG WITHDRAWN)
     Route: 048
     Dates: start: 20210831, end: 20210831
  207. EPCORITAMAB [Suspect]
     Active Substance: EPCORITAMAB
     Indication: Diffuse large B-cell lymphoma stage II
     Dosage: 0.16 MG, SINGLE (REGIMEN: 1; PHARMACEUTICAL DOSE FORM: 15)
     Route: 058
     Dates: start: 20210901, end: 20210901
  208. EPCORITAMAB [Suspect]
     Active Substance: EPCORITAMAB
     Indication: Diffuse large B-cell lymphoma
     Dosage: PRIMING DOSE 0.16 MG, SINGLE (PHARMACEUTICAL DOSE FORM: 231)
     Route: 058
     Dates: start: 20210901, end: 20210901
  209. EPCORITAMAB [Suspect]
     Active Substance: EPCORITAMAB
     Indication: Diffuse large B-cell lymphoma
     Dosage: 0.8 MG, SINGLE (PHARMACEUTICAL DOSE FORM: 15)
     Route: 058
     Dates: start: 20210901, end: 20210901
  210. EPCORITAMAB [Suspect]
     Active Substance: EPCORITAMAB
     Dosage: 0.8 MG, SINGLE (INTERMEDIATE DOSE) (PHARMACEUTICAL DOSE FORM: 15)
     Route: 058
     Dates: start: 20210908, end: 20210908
  211. EPCORITAMAB [Suspect]
     Active Substance: EPCORITAMAB
     Dosage: 0.8 MG, SINGLE (PRIMING DOSE) (PHARMACEUTICAL DOSE FORM: 15)
     Route: 058
     Dates: start: 20210901, end: 20210901
  212. EPCORITAMAB [Suspect]
     Active Substance: EPCORITAMAB
     Dosage: 0.8 MG, SINGLE (FULL DOSE) (PHARMACEUTICAL DOSE FORM: 15)
     Route: 058
     Dates: start: 20210922
  213. EPCORITAMAB [Suspect]
     Active Substance: EPCORITAMAB
     Dosage: INTERMEDIATE DOSE 0.8 MG, SINGLE (DOSE FORM: 231)
     Route: 058
     Dates: start: 20210908, end: 20210908
  214. EPCORITAMAB [Suspect]
     Active Substance: EPCORITAMAB
     Dosage: FULL DOSE 0.8 MG, SINGLE (DOSE FORM: 231)
     Route: 058
     Dates: start: 20210922
  215. EPCORITAMAB [Suspect]
     Active Substance: EPCORITAMAB
     Dosage: 0.16 MG, SINGLE (PRIMING DOSE) (PHARMACEUTICAL DOSE FORM: 15)
     Route: 058
     Dates: start: 20210901, end: 20210901
  216. EPCORITAMAB [Suspect]
     Active Substance: EPCORITAMAB
     Dosage: PRIMING DOSE 0.16MG, SINGLE (PRIMING DOSE) (PHARMACEUTICAL DOSE FORM: 15)
     Route: 058
     Dates: start: 20210901, end: 20210901
  217. EPCORITAMAB [Suspect]
     Active Substance: EPCORITAMAB
     Dosage: INTERMEDIATE DOSE 0.8 MG, SINGLE (PHARMACEUTICAL DOSE FORM: 15)
     Route: 058
     Dates: start: 20210901, end: 20210901
  218. EPCORITAMAB [Suspect]
     Active Substance: EPCORITAMAB
     Dosage: UNK, (PHARMACEUTICAL DOSAGE FORM: 15; CUMULATIVE DOSE: 0.96 MG)
  219. EPCORITAMAB [Suspect]
     Active Substance: EPCORITAMAB
     Dosage: UNK, (PHARMACEUTICAL DOSAGE FORM: 15; CUMULATIVE DOSE: 0.96 MG)
  220. EPCORITAMAB [Suspect]
     Active Substance: EPCORITAMAB
     Dosage: 0.8 MILLIGRAM, SINGLE, ADDITIONAL INFORMATION: REGIMEN: 2, DUOBODY-CD3XCD20
     Route: 058
     Dates: start: 20210908, end: 20210908
  221. EPCORITAMAB [Suspect]
     Active Substance: EPCORITAMAB
     Dosage: 0.8 MILLIGRAM
     Route: 058
     Dates: start: 20210908, end: 20210908
  222. EPCORITAMAB [Suspect]
     Active Substance: EPCORITAMAB
     Dosage: 0.16 MILLIGRAM, SINGLE, ADDITIONAL INFORMATION: REGIMEN: 1, DUOBODY-CD3XCD20
     Route: 058
     Dates: start: 20210901, end: 20210901
  223. EPCORITAMAB [Suspect]
     Active Substance: EPCORITAMAB
     Dosage: 0.16 MILLIGRAM
     Route: 058
     Dates: start: 20210901, end: 20210901
  224. EPCORITAMAB [Suspect]
     Active Substance: EPCORITAMAB
     Dosage: 0.8 MG (0.16 MILLIGRAM, SINGLE), CUMULATIVE DOSE: 0.96 MG, ADDITIONAL INFORMATION: REGIMEN: 3, DUOBO
     Route: 058
     Dates: start: 20210922
  225. EPCORITAMAB [Suspect]
     Active Substance: EPCORITAMAB
     Dosage: 48 MG (C2D15), ADDITIONAL INFORMATION: REGIMEN: 4, DUOBODY-CD3XCD20
     Route: 058
     Dates: start: 20211013
  226. EPCORITAMAB [Suspect]
     Active Substance: EPCORITAMAB
     Dosage: 0.8 MILLIGRAM, SINGLE, CUMULATIVE DOSE TO FIRST REACTION: 1.6 MG
     Route: 058
     Dates: start: 20210908, end: 20210908
  227. EPCORITAMAB [Suspect]
     Active Substance: EPCORITAMAB
     Dosage: 0.16 MILLIGRAM, SINGLE, CUMULATIVE DOSE TO FIRST REACTION: 1.44 MG
     Route: 058
     Dates: start: 20210901, end: 20210901
  228. EPCORITAMAB [Suspect]
     Active Substance: EPCORITAMAB
     Dosage: 0.16 MILLIGRAM, SINGLE (PRIMING DOSE) (CUMULATIVE DOSE TO FIRST REACTION: 0.96 MG)
     Route: 058
     Dates: start: 20210901, end: 20210901
  229. EPCORITAMAB [Suspect]
     Active Substance: EPCORITAMAB
     Dosage: 0.16 MILLIGRAM, SINGLE (CUMULATIVE DOSE TO FIRST REACTION: 0.96 MG)
     Route: 058
     Dates: start: 20210901, end: 20210901
  230. EPCORITAMAB [Suspect]
     Active Substance: EPCORITAMAB
     Dosage: UNK(CUMULATIVE DOSE TO FIRST REACTION: 0.96 MG)
  231. EPCORITAMAB [Suspect]
     Active Substance: EPCORITAMAB
     Indication: Diffuse large B-cell lymphoma stage II
     Dosage: 48 MG (C2D15) (REGIMEN: 4, DUOBODY-CD3XCD20) REGIMEN: 2, DUOBODY-CD3XCD20
     Route: 058
     Dates: start: 20211013
  232. EPCORITAMAB [Suspect]
     Active Substance: EPCORITAMAB
     Dosage: 0.16 MILLIGRAM, SINGLE (REGIMEN: 3, DUOBODY-CD3XCD20)(CUMULATIVE DOSE: 0.96 MG)
     Route: 058
     Dates: start: 20210922
  233. EPCORITAMAB [Suspect]
     Active Substance: EPCORITAMAB
     Dosage: 0.16 MILLIGRAM, SINGLE (REGIMEN: 3, DUOBODY-CD3XCD20) REGIMEN: 2, DUOBODY-CD3XCD20
     Route: 058
     Dates: start: 20210901, end: 20210901
  234. EPCORITAMAB [Suspect]
     Active Substance: EPCORITAMAB
     Dosage: 0.16 MILLIGRAM, SINGLE REGIMEN: 2, DUOBODY-CD3XCD20
     Route: 058
     Dates: start: 20210901, end: 20210901
  235. EPCORITAMAB [Suspect]
     Active Substance: EPCORITAMAB
     Dosage: 0.16 MILLIGRAM, SINGLE REGIMEN: 2, DUOBODY-CD3XCD20
     Route: 058
     Dates: start: 20210901, end: 20210901
  236. EPCORITAMAB [Suspect]
     Active Substance: EPCORITAMAB
     Dosage: 0.16 MILLIGRAM, SINGLE REGIMEN: 2, DUOBODY-CD3XCD20
     Route: 058
     Dates: start: 20210901, end: 20210901
  237. EPCORITAMAB [Suspect]
     Active Substance: EPCORITAMAB
     Dosage: 0.8 MILLIGRAM, SINGLE (REGIMEN: 2, DUOBODY-CD3XCD20) CUMULATIVE DOSE TO FIRST REACTION: 1.6 MG
     Route: 058
     Dates: start: 20210908, end: 20210908
  238. EPCORITAMAB [Suspect]
     Active Substance: EPCORITAMAB
     Dosage: 0.8 MILLIGRAM, SINGLE (REGIMEN: 2, DUOBODY-CD3XCD20) CUMULATIVE DOSE TO FIRST REACTION: 1.6 MG
     Route: 058
     Dates: start: 20210908, end: 20210908
  239. EPCORITAMAB [Suspect]
     Active Substance: EPCORITAMAB
     Dosage: 0.8 MILLIGRAM, SINGLE (REGIMEN: 2, DUOBODY-CD3XCD20) CUMULATIVE DOSE TO FIRST REACTION: 1.6 MG
     Route: 058
     Dates: start: 20210908, end: 20210908
  240. EPCORITAMAB [Suspect]
     Active Substance: EPCORITAMAB
     Dosage: 0.8 MILLIGRAM, SINGLE (REGIMEN: 2, DUOBODY-CD3XCD20) CUMULATIVE DOSE TO FIRST REACTION: 1.6 MG
     Route: 058
     Dates: start: 20210908, end: 20210908
  241. EPCORITAMAB [Suspect]
     Active Substance: EPCORITAMAB
     Dosage: 48 MG (C2D15) REGIMEN: 2, DUOBODY-CD3XCD20
     Route: 058
     Dates: start: 20211013
  242. EPCORITAMAB [Suspect]
     Active Substance: EPCORITAMAB
     Dosage: 48 MG (C2D15) REGIMEN: 2, DUOBODY-CD3XCD20
     Route: 058
     Dates: start: 20211013
  243. EPCORITAMAB [Suspect]
     Active Substance: EPCORITAMAB
     Dosage: 48 MG (C2D15) REGIMEN: 2, DUOBODY-CD3XCD20
     Route: 058
     Dates: start: 20211013
  244. EPCORITAMAB [Suspect]
     Active Substance: EPCORITAMAB
     Dosage: (0.16 MILLIGRAM, SINGLE/CUMULATIVE DOSE TO FIRST REACTION: 9.6 MG
     Route: 058
     Dates: start: 20210922
  245. EPCORITAMAB [Suspect]
     Active Substance: EPCORITAMAB
     Dosage: (0.16 MILLIGRAM, SINGLE/CUMULATIVE DOSE TO FIRST REACTION: 9.6 MG
     Route: 058
     Dates: start: 20210922
  246. EPCORITAMAB [Suspect]
     Active Substance: EPCORITAMAB
     Dosage: (0.16 MILLIGRAM, SINGLE/CUMULATIVE DOSE TO FIRST REACTION: 9.6 MG
     Route: 058
     Dates: start: 20210922
  247. EPCORITAMAB [Suspect]
     Active Substance: EPCORITAMAB
     Dosage: (0.16 MILLIGRAM, SINGLE/CUMULATIVE DOSE TO FIRST REACTION: 9.6 MG
     Route: 058
     Dates: start: 20210922
  248. EPCORITAMAB [Suspect]
     Active Substance: EPCORITAMAB
     Indication: Diffuse large B-cell lymphoma
     Dosage: 0.8 MILLIGRAM (INTERMEDIATE DOSE) CUMULATIVE DOSE TO FIRST REACTION: 0.96 MG
     Route: 058
     Dates: start: 20210908, end: 20210908
  249. EPCORITAMAB [Suspect]
     Active Substance: EPCORITAMAB
     Dosage: 0.16 MILLIGRAM (PRIMING DOSE) CUMULATIVE DOSE TO FIRST REACTION: 0.96 MG
     Route: 058
     Dates: start: 20210901, end: 20210901
  250. EPCORITAMAB [Suspect]
     Active Substance: EPCORITAMAB
     Dosage: 0.16 MILLIGRAM, 1 TOTAL,  CUMULATIVE DOSE TO FIRST REACTION: 0.96 MG
     Route: 058
     Dates: start: 20210901, end: 20210901
  251. EPCORITAMAB [Suspect]
     Active Substance: EPCORITAMAB
     Dosage: UNK, CUMULATIVE DOSE TO FIRST REACTION: 0.96 MG
  252. EPCORITAMAB [Suspect]
     Active Substance: EPCORITAMAB
     Dosage: CUMULATIVE DOSE TO FIRST REACTION: 0.96 MG
     Route: 058
     Dates: start: 20210901, end: 20210901
  253. EPCORITAMAB [Suspect]
     Active Substance: EPCORITAMAB
     Dosage: 48 MF, FULL DOSE (CUMULATIVE DOSE TO FIRST REACTION: 0.96 MG) (ADDITIONAL INFORMATION ON DRUG: REGIM
     Route: 058
     Dates: start: 20210922
  254. EPCORITAMAB [Suspect]
     Active Substance: EPCORITAMAB
     Dosage: 48 MILLIGRAM (C2D15), (ADDITIONAL INFORMATION ON DRUG: REGIMEN: 4, DUOBODY-CD3XCD20)
     Route: 058
     Dates: start: 20211013
  255. FRAGMIN [Suspect]
     Active Substance: DALTEPARIN SODIUM
     Indication: Prophylaxis
     Dosage: 5000 UNITS, QD (REGIMEN: 1; PHARMACEUTICAL DOSE FORM: 231)
     Route: 058
     Dates: start: 202107, end: 20210908
  256. FRAGMIN [Suspect]
     Active Substance: DALTEPARIN SODIUM
     Dosage: 5000 IU, 1X/DAY (DOSE FORM: 231)
     Route: 058
     Dates: start: 202107, end: 20210908
  257. FRAGMIN [Suspect]
     Active Substance: DALTEPARIN SODIUM
     Dosage: (REGIMEN: 1; PHARMACEUTICAL DOSE FORM: 231)
     Route: 058
     Dates: start: 202107, end: 20210908
  258. FRAGMIN [Suspect]
     Active Substance: DALTEPARIN SODIUM
     Dosage: UNK, UNK, QD 5000 UNITS, QD
     Route: 058
     Dates: start: 202107, end: 20210908
  259. FRAGMIN [Suspect]
     Active Substance: DALTEPARIN SODIUM
     Dosage: 25 IU, QD (5000 IU, 1X/DAY)
     Route: 058
     Dates: start: 202107, end: 20210908
  260. FRAGMIN [Suspect]
     Active Substance: DALTEPARIN SODIUM
     Dosage: 5000 UNITS, QD (PHARMACEUTICAL DOSE FORM: 231)
     Route: 058
     Dates: start: 202107, end: 20210908
  261. FRAGMIN [Suspect]
     Active Substance: DALTEPARIN SODIUM
     Dosage: 5000 UNITS
     Route: 058
     Dates: start: 202107, end: 20210908
  262. FRAGMIN [Suspect]
     Active Substance: DALTEPARIN SODIUM
     Dosage: REGIMEN: 1, 5000 UNITS, QD
     Route: 058
     Dates: start: 202107
  263. OXALIPLATIN [Suspect]
     Active Substance: OXALIPLATIN
     Indication: Diffuse large B-cell lymphoma
     Dosage: (REGIMEN : 1; PHARMACEUTICAL DOSE FORM: 16)
     Route: 042
  264. OXALIPLATIN [Suspect]
     Active Substance: OXALIPLATIN
     Indication: Diffuse large B-cell lymphoma stage II
     Dosage: UNK (REGIMEN : 1; PHARMACEUTICAL DOSE FORM: 16)
     Route: 042
  265. OXALIPLATIN [Suspect]
     Active Substance: OXALIPLATIN
     Indication: Diffuse large B-cell lymphoma
     Dosage: UNK (DOSE FORM: 16)
     Route: 042
  266. OXALIPLATIN [Suspect]
     Active Substance: OXALIPLATIN
     Dosage: UNK
     Route: 042
  267. ACYCLOVIR [Concomitant]
     Active Substance: ACYCLOVIR
     Dosage: UNK
     Dates: start: 202103
  268. CHLORPHENIRAMINE MALEATE [Concomitant]
     Active Substance: CHLORPHENIRAMINE MALEATE
     Indication: Premedication
     Dosage: UNK
     Route: 042
     Dates: start: 20210908, end: 20210908
  269. CHLORPHENIRAMINE MALEATE [Concomitant]
     Active Substance: CHLORPHENIRAMINE MALEATE
     Dosage: UNK
     Route: 042
     Dates: start: 20210908, end: 20210922
  270. CHLORPHENIRAMINE MALEATE [Concomitant]
     Active Substance: CHLORPHENIRAMINE MALEATE
     Dosage: UNK
     Route: 042
     Dates: start: 20210831, end: 20210908
  271. CHLORPHENIRAMINE MALEATE [Concomitant]
     Active Substance: CHLORPHENIRAMINE MALEATE
     Dosage: UNK
     Dates: start: 20210908, end: 20210908
  272. CHLORPHENIRAMINE MALEATE [Concomitant]
     Active Substance: CHLORPHENIRAMINE MALEATE
     Dosage: UNK
     Dates: start: 20210908, end: 20210922
  273. CHLORPHENIRAMINE MALEATE [Concomitant]
     Active Substance: CHLORPHENIRAMINE MALEATE
     Dosage: 10 MG
     Route: 042
     Dates: start: 20210831, end: 20210831
  274. CHLORPHENIRAMINE MALEATE [Concomitant]
     Active Substance: CHLORPHENIRAMINE MALEATE
     Dosage: 10 MG
     Route: 042
     Dates: start: 20210908, end: 20210908
  275. CHLORPHENIRAMINE MALEATE [Concomitant]
     Active Substance: CHLORPHENIRAMINE MALEATE
     Dosage: 10 MG
     Route: 042
     Dates: start: 20210901, end: 20210901
  276. FILGRASTIM [Concomitant]
     Active Substance: FILGRASTIM
     Dosage: UNK
     Dates: start: 202104
  277. FLUOXETINE [Concomitant]
     Active Substance: FLUOXETINE HYDROCHLORIDE
     Dosage: UNK
     Dates: start: 202103
  278. FOLIC ACID [Concomitant]
     Active Substance: FOLIC ACID
     Dosage: UNK
     Dates: start: 202104
  279. LANSOPRAZOLE [Concomitant]
     Active Substance: LANSOPRAZOLE
     Dosage: UNK
     Dates: start: 202104
  280. ONDANSETRON [Concomitant]
     Active Substance: ONDANSETRON
     Dosage: UNK UNK, QD
     Route: 065
     Dates: start: 20210901, end: 20210901
  281. ONDANSETRON [Concomitant]
     Active Substance: ONDANSETRON
     Dosage: UNK
     Route: 065
     Dates: start: 20210901, end: 20210901
  282. ONDANSETRON [Concomitant]
     Active Substance: ONDANSETRON
     Dosage: UNK
     Dates: start: 20210901, end: 20210901
  283. ACETAMINOPHEN [Concomitant]
     Active Substance: ACETAMINOPHEN
     Indication: Premedication
     Dosage: UNK UNK, QD
     Route: 048
     Dates: start: 20210908, end: 20210908
  284. ACETAMINOPHEN [Concomitant]
     Active Substance: ACETAMINOPHEN
     Dosage: 1 G
     Route: 048
     Dates: start: 20210908, end: 20210908
  285. ACETAMINOPHEN [Concomitant]
     Active Substance: ACETAMINOPHEN
     Dosage: 1 G
     Route: 048
     Dates: start: 20210908, end: 20210922
  286. ACETAMINOPHEN [Concomitant]
     Active Substance: ACETAMINOPHEN
     Dosage: UNK
     Route: 048
     Dates: start: 20210908, end: 20210922
  287. ACETAMINOPHEN [Concomitant]
     Active Substance: ACETAMINOPHEN
     Dosage: 1 G
     Route: 048
     Dates: start: 20210831, end: 20210908
  288. ACETAMINOPHEN [Concomitant]
     Active Substance: ACETAMINOPHEN
     Dosage: UNK
     Route: 048
     Dates: start: 20210831
  289. ACETAMINOPHEN [Concomitant]
     Active Substance: ACETAMINOPHEN
     Dosage: UNK
     Route: 048
     Dates: start: 20210908, end: 20210908
  290. ACETAMINOPHEN [Concomitant]
     Active Substance: ACETAMINOPHEN
     Dosage: UNK
     Route: 048
     Dates: start: 20210901
  291. ACETAMINOPHEN [Concomitant]
     Active Substance: ACETAMINOPHEN
     Dosage: UNK
     Dates: start: 20210908, end: 20210922
  292. ACETAMINOPHEN [Concomitant]
     Active Substance: ACETAMINOPHEN
     Dosage: UNK
     Dates: start: 20210901
  293. ACETAMINOPHEN [Concomitant]
     Active Substance: ACETAMINOPHEN
     Dosage: UNK
     Dates: start: 20210908, end: 20210908
  294. ACETAMINOPHEN [Concomitant]
     Active Substance: ACETAMINOPHEN
     Dosage: UNK
     Dates: start: 202107
  295. POSACONAZOLE [Concomitant]
     Active Substance: POSACONAZOLE
     Dosage: UNK
     Dates: start: 202107
  296. CHLORPHENIRAMINE MALEATE [Concomitant]
     Active Substance: CHLORPHENIRAMINE MALEATE
     Indication: Premedication
     Dosage: 10 MG
     Route: 042
     Dates: start: 20210908, end: 20210908
  297. CHLORPHENIRAMINE MALEATE [Concomitant]
     Active Substance: CHLORPHENIRAMINE MALEATE
     Dosage: 10 MG
     Route: 042
     Dates: start: 20210908, end: 20210922
  298. CHLORPHENIRAMINE MALEATE [Concomitant]
     Active Substance: CHLORPHENIRAMINE MALEATE
     Dosage: 10 MG
     Route: 042
     Dates: start: 20210831, end: 20210831
  299. CHLORPHENIRAMINE MALEATE [Concomitant]
     Active Substance: CHLORPHENIRAMINE MALEATE
     Dosage: 10 MG
     Route: 042
     Dates: start: 20210901, end: 20210901
  300. CHLORPHENIRAMINE MALEATE [Concomitant]
     Active Substance: CHLORPHENIRAMINE MALEATE
     Dosage: UNK
     Dates: start: 20210908, end: 20210922
  301. CHLORPHENIRAMINE MALEATE [Concomitant]
     Active Substance: CHLORPHENIRAMINE MALEATE
     Dosage: UNK
     Dates: start: 20210908, end: 20210908
  302. CHLORPHENIRAMINE MALEATE [Concomitant]
     Active Substance: CHLORPHENIRAMINE MALEATE
     Dosage: 10 MG
     Dates: start: 20210831, end: 20210831
  303. METOCLOPRAMIDE [Concomitant]
     Active Substance: METOCLOPRAMIDE
     Dosage: UNK
     Dates: start: 20211011
  304. DEXAMETHASONE SODIUM PHOSPHATE [Concomitant]
     Active Substance: DEXAMETHASONE SODIUM PHOSPHATE
     Dosage: UNK
     Dates: start: 20210902, end: 20210911
  305. DEXAMETHASONE SODIUM PHOSPHATE [Concomitant]
     Active Substance: DEXAMETHASONE SODIUM PHOSPHATE
     Dosage: UNK
     Dates: start: 20210902, end: 20210911
  306. DEXAMETHASONE [Concomitant]
     Active Substance: DEXAMETHASONE
     Indication: Prophylaxis
     Dosage: UNK
     Dates: start: 20210902, end: 20210911
  307. DEXAMETHASONE [Concomitant]
     Active Substance: DEXAMETHASONE
     Dosage: UNK
     Dates: start: 20210902, end: 20210911
  308. DEXAMETHASONE [Concomitant]
     Active Substance: DEXAMETHASONE
     Dosage: 16 MG
     Route: 048
     Dates: start: 20210909, end: 20210911
  309. DEXAMETHASONE [Concomitant]
     Active Substance: DEXAMETHASONE
     Dosage: 16 MG
     Route: 042
     Dates: start: 20210908, end: 20210908

REACTIONS (9)
  - Neutropenic infection [Recovered/Resolved]
  - Febrile neutropenia [Recovered/Resolved]
  - Febrile neutropenia [Recovered/Resolved]
  - Neutropenia [Unknown]
  - Thrombocytopenia [Recovered/Resolved]
  - Cellulitis [Recovered/Resolved]
  - Product use issue [Unknown]
  - Neutropenic infection [Recovered/Resolved]
  - Disease progression [Unknown]

NARRATIVE: CASE EVENT DATE: 20210727
